FAERS Safety Report 15551917 (Version 2)
Quarter: 2018Q4

REPORT INFORMATION
  Report Type: Spontaneous
  Country: BR (occurrence: BR)
  Receive Date: 20181025
  Receipt Date: 20181105
  Transmission Date: 20190205
  Serious: Yes (Death)
  Sender: FDA-Public Use
  Company Number: BR-SAKK-2018SA292307AA

PATIENT
  Sex: Female

DRUGS (1)
  1. LANTUS [Suspect]
     Active Substance: INSULIN GLARGINE
     Dosage: UNK, UNK
     Route: 065

REACTIONS (2)
  - Drug ineffective [Unknown]
  - Death [Fatal]

NARRATIVE: CASE EVENT DATE: 2018
